FAERS Safety Report 5353985-3 (Version None)
Quarter: 2007Q2

REPORT INFORMATION
  Report Type: 
  Country: None (occurrence: None)
  Receive Date: 20070612
  Receipt Date: 20070531
  Transmission Date: 20071010
  Serious: Yes (Other)
  Sender: FDA-Public Use
  Company Number: US-ASTRAZENECA-2006UW08418

PATIENT
  Age: 584 Month
  Sex: Male
  Weight: 137.3 kg

DRUGS (1)
  1. SEROQUEL [Suspect]
     Indication: SLEEP DISORDER
     Route: 048
     Dates: start: 20050222, end: 20060202

REACTIONS (2)
  - DIABETES MELLITUS [None]
  - KETOACIDOSIS [None]
